FAERS Safety Report 9704442 (Version 4)
Quarter: 2015Q3

REPORT INFORMATION
  Report Type: Spontaneous
  Country: US (occurrence: US)
  Receive Date: 20131122
  Receipt Date: 20150716
  Transmission Date: 20151125
  Serious: Yes (Other)
  Sender: FDA-Public Use
  Company Number: US-BAYER-2013-141280

PATIENT
  Age: 30 Year
  Sex: Female
  Weight: 43 kg

DRUGS (6)
  1. MIRENA [Suspect]
     Active Substance: LEVONORGESTREL
     Indication: CONTRACEPTION
     Dosage: 20 MCG/24HR, CONT
     Route: 015
     Dates: start: 20090415, end: 201007
  2. SEROQUEL [Concomitant]
     Active Substance: QUETIAPINE FUMARATE
     Dosage: UNK
     Dates: start: 20100803
  3. ZOLOFT [Concomitant]
     Active Substance: SERTRALINE HYDROCHLORIDE
     Dosage: UNK
     Dates: start: 20100803
  4. MORPHINE [Concomitant]
     Active Substance: MORPHINE
  5. ASACOL [Concomitant]
     Active Substance: MESALAMINE
     Dosage: UNK
     Dates: start: 20100803
  6. AUGMENTIN [Concomitant]
     Active Substance: AMOXICILLIN\CLAVULANATE POTASSIUM

REACTIONS (9)
  - Pelvic abscess [None]
  - Patient-device incompatibility [None]
  - Seizure [None]
  - Pain [None]
  - Anxiety [None]
  - Infection [None]
  - Intestinal perforation [None]
  - White blood cell count increased [None]
  - Depression [None]

NARRATIVE: CASE EVENT DATE: 201003
